FAERS Safety Report 4648622-7 (Version None)
Quarter: 2005Q2

REPORT INFORMATION
  Report Type: 
  Country: None (occurrence: None)
  Receive Date: 20050427
  Receipt Date: 20050414
  Transmission Date: 20051028
  Serious: Yes (Hospitalization, Other)
  Sender: FDA-Public Use
  Company Number: 2005057379

PATIENT
  Age: 82 Year
  Sex: Female

DRUGS (10)
  1. SOLU-MEDROL [Suspect]
     Indication: ILL-DEFINED DISORDER
     Dosage: 50 MG 91 IN 1 D), INTRAVENOUS
     Route: 042
     Dates: start: 20050309, end: 20050315
  2. LETROZOLE (LETROZOLE) [Suspect]
     Indication: BREAST CANCER
     Dosage: (1 IN 1 D), ORAL
     Route: 048
     Dates: start: 20050314
  3. HEPARIN CALCIUM [Suspect]
     Indication: ILL-DEFINED DISORDER
     Dosage: 10000 I.U. (2 IN 1 D), SUBCUTANEOUS
     Route: 058
     Dates: start: 20050306, end: 20050315
  4. TAMOXIFEN (TAMOXIFEN) [Concomitant]
  5. TERBUTALINE SULFATE [Concomitant]
  6. IPRATROPIUM BROMIDE [Concomitant]
  7. TOBRAMYCIN SULFATE [Concomitant]
  8. RETINOL (RETINOL) [Concomitant]
  9. CLAVULIN (AMOXICILLIN TRIHYDRATE, CALVULANATE POTASSIUM) [Concomitant]
  10. SPIRAMYCIN (SPIRAMYCIN) [Concomitant]

REACTIONS (5)
  - CEREBROVASCULAR ACCIDENT [None]
  - CONDITION AGGRAVATED [None]
  - CONVULSION [None]
  - LYMPHANGIOSIS CARCINOMATOSA [None]
  - THROMBOCYTOPENIA [None]
